FAERS Safety Report 5268484-7 (Version None)
Quarter: 2007Q1

REPORT INFORMATION
  Report Type: 
  Country: None (occurrence: None)
  Receive Date: 20061213
  Receipt Date: 20040810
  Transmission Date: 20070707
  Serious: Yes (Other)
  Sender: FDA-Public Use
  Company Number: 2004UW16988

PATIENT
  Age: 79 Year
  Sex: Male
  Weight: 117.9352 kg

DRUGS (11)
  1. IRESSA [Suspect]
     Indication: NON-SMALL CELL LUNG CANCER
     Dates: start: 20020101
  2. LASIX [Concomitant]
  3. LIPITOR [Concomitant]
  4. DIGITEK [Concomitant]
  5. POTASSIUM ACETATE [Concomitant]
  6. NORPACE [Concomitant]
  7. SYNTHROID [Concomitant]
  8. VITAMIN E [Concomitant]
  9. ASCORBIC ACID [Concomitant]
  10. VITAMIN A [Concomitant]
  11. LOVENOX [Concomitant]

REACTIONS (1)
  - THROMBOSIS [None]
